FAERS Safety Report 13383754 (Version 4)
Quarter: 2017Q3

REPORT INFORMATION
  Report Type: Spontaneous
  Country: US (occurrence: US)
  Receive Date: 20170329
  Receipt Date: 20170705
  Transmission Date: 20171127
  Serious: Yes (Hospitalization, Other)
  Sender: FDA-Public Use
  Company Number: US-PFIZER INC-2017132882

PATIENT
  Age: 55 Year
  Sex: Male
  Weight: 122.49 kg

DRUGS (5)
  1. LYRICA [Suspect]
     Active Substance: PREGABALIN
     Indication: FIBROMYALGIA
     Dosage: 600 MG, UNK
  2. LYRICA [Suspect]
     Active Substance: PREGABALIN
     Indication: NEUROPATHY PERIPHERAL
     Dosage: 300 MG, DAILY
     Dates: start: 201702
  3. VENLAFAXIN [Concomitant]
     Active Substance: VENLAFAXINE HYDROCHLORIDE
     Dosage: UNK
     Dates: start: 201404
  4. LYRICA [Suspect]
     Active Substance: PREGABALIN
     Indication: DIABETIC NEUROPATHY
     Dosage: 150 MG, UNK
  5. LYRICA [Suspect]
     Active Substance: PREGABALIN
     Indication: NAIL DISORDER
     Dosage: 120 MG, UNK

REACTIONS (6)
  - Drug effect incomplete [Not Recovered/Not Resolved]
  - Cerebrovascular accident [Recovered/Resolved]
  - Limb discomfort [Unknown]
  - Hypoaesthesia [Unknown]
  - Myocardial infarction [Recovered/Resolved]
  - Onychalgia [Not Recovered/Not Resolved]

NARRATIVE: CASE EVENT DATE: 201602
